FAERS Safety Report 11218245 (Version 1)
Quarter: 2015Q2

REPORT INFORMATION
  Report Type: Spontaneous
  Country: CA (occurrence: None)
  Receive Date: 20150623
  Receipt Date: 20150623
  Transmission Date: 20150821
  Serious: No
  Sender: FDA-Public Use
  Company Number: AMAG201400108

PATIENT
  Age: 43 Year
  Sex: Female
  Weight: 42 kg

DRUGS (11)
  1. FERROUS SULFATE [Concomitant]
     Active Substance: FERROUS SULFATE\FERROUS SULFATE, DRIED
  2. MORPHINE (MORPHINE HYDROCHLORIDE) [Suspect]
     Active Substance: MORPHINE
  3. REPLAVITE (ASCORBIC ACID, BIOTIN, CYANOCOBALAMIN, FOLIC ACID, NICOTINAMIDE, PANTOTHENATE SODIUM, PYRIDOXINE HYDROCHLORIDE, RIBOFLAVIN, THIAMINE MONONITRATE) [Concomitant]
  4. TPN (NICOTINAMIDE, PYRIDOXINE HYDROCHLORIDE, TYROSINE) [Concomitant]
  5. VITAMIN B COMPLEX WITH C (ASCORBIC ACID, CALCIUM PANTOTHENATE, CYANOCOBALAMIN, NICOTINAMIDE, PYRIDOXINE HYDROCHLORIDE, RIBOFLAVIN, THIAMINE MONONITRATE) [Concomitant]
  6. VITAMIN D (COLECALCIFEROL) [Concomitant]
  7. DARBEPOETIN ALFA [Concomitant]
     Active Substance: DARBEPOETIN ALFA
  8. FERAHEME [Suspect]
     Active Substance: FERUMOXYTOL NON-STOICHIOMETRIC MAGNETITE
     Indication: IRON DEFICIENCY ANAEMIA
     Dosage: 180 MG, SINGLE
     Route: 042
     Dates: start: 20140311, end: 20140311
  9. ALPHACALCIDOL [Concomitant]
     Active Substance: ALFACALCIDOL
  10. PHENYTOIN (PHENTOIN SODIUM) [Concomitant]
  11. URSODEOXYCHOLIC ACID [Concomitant]
     Active Substance: URSODIOL

REACTIONS (5)
  - Infusion related reaction [None]
  - Erythema [None]
  - Dizziness [None]
  - Dyspepsia [None]
  - Chest pain [None]

NARRATIVE: CASE EVENT DATE: 20140311
